FAERS Safety Report 17449601 (Version 1)
Quarter: 2020Q1

REPORT INFORMATION
  Report Type: Spontaneous
  Country: US (occurrence: US)
  Receive Date: 20200224
  Receipt Date: 20200224
  Transmission Date: 20200409
  Serious: Yes (Other)
  Sender: FDA-Public Use
  Company Number: US-SA-2020SA047567

PATIENT
  Sex: Male
  Weight: 70 kg

DRUGS (26)
  1. SUPER B COMPLEX WITH VITAMIN C [Concomitant]
     Route: 065
  2. LORATADINE. [Concomitant]
     Active Substance: LORATADINE
     Route: 065
  3. PROBIOTICS NOS [Concomitant]
     Active Substance: PROBIOTICS NOS
     Route: 065
  4. VITAMIN D3 [Concomitant]
     Active Substance: CHOLECALCIFEROL
     Route: 065
  5. FABRAZYME [Suspect]
     Active Substance: AGALSIDASE BETA
     Dosage: 85 MG, QOW
     Route: 042
     Dates: start: 20100308
  6. HEPARIN [Concomitant]
     Active Substance: HEPARIN SODIUM
     Route: 065
  7. NORMAL SALINE [Concomitant]
     Active Substance: SODIUM CHLORIDE
     Route: 065
  8. STERILE WATER [Concomitant]
     Active Substance: WATER
     Route: 065
  9. PSYLLIUM FIBRE [Concomitant]
     Route: 065
  10. PREDNISONE. [Concomitant]
     Active Substance: PREDNISONE
     Route: 065
  11. DIPHENHYDRAMINE. [Concomitant]
     Active Substance: DIPHENHYDRAMINE
     Route: 065
  12. DHEA [Concomitant]
     Active Substance: PRASTERONE
     Route: 065
  13. FABRAZYME [Suspect]
     Active Substance: AGALSIDASE BETA
     Indication: FABRY^S DISEASE
     Dosage: 1.21 MG/KG, 85 MG QOW
     Route: 042
     Dates: start: 20100308
  14. LIDOCAINE. [Concomitant]
     Active Substance: LIDOCAINE
     Route: 065
  15. SENSIPAR [Concomitant]
     Active Substance: CINACALCET HYDROCHLORIDE
     Route: 065
  16. MUPIROCIN. [Concomitant]
     Active Substance: MUPIROCIN
     Route: 065
  17. VENLAFAXINE [Concomitant]
     Active Substance: VENLAFAXINE HYDROCHLORIDE
     Route: 065
  18. SYNTHROID [Concomitant]
     Active Substance: LEVOTHYROXINE SODIUM
     Route: 065
  19. FENOFIBRATE. [Concomitant]
     Active Substance: FENOFIBRATE
     Route: 065
  20. LOPERAMIDE [Concomitant]
     Active Substance: LOPERAMIDE
     Route: 065
  21. METOPROLOL. [Concomitant]
     Active Substance: METOPROLOL
     Route: 065
  22. FLUTICASONE. [Concomitant]
     Active Substance: FLUTICASONE
     Route: 065
  23. PARICALCITOL. [Concomitant]
     Active Substance: PARICALCITOL
     Route: 065
  24. GABAPENTIN. [Concomitant]
     Active Substance: GABAPENTIN
     Route: 065
  25. EPINEPHRINE. [Concomitant]
     Active Substance: EPINEPHRINE
     Route: 065
  26. TRAMADOL. [Concomitant]
     Active Substance: TRAMADOL
     Route: 065

REACTIONS (2)
  - Clostridium difficile infection [Unknown]
  - Pyrexia [Unknown]
